FAERS Safety Report 25761073 (Version 1)
Quarter: 2025Q3

REPORT INFORMATION
  Report Type: Report from Study
  Country: CA (occurrence: CA)
  Receive Date: 20250904
  Receipt Date: 20250904
  Transmission Date: 20251020
  Serious: Yes (Death, Other)
  Sender: TAKEDA
  Company Number: CA-TAKEDA-2025TUS077544

PATIENT
  Sex: Female

DRUGS (18)
  1. VEDOLIZUMAB [Suspect]
     Active Substance: VEDOLIZUMAB
     Indication: Crohn^s disease
     Dates: start: 20240530, end: 20250612
  2. IRON [Concomitant]
     Active Substance: IRON
     Indication: Supplementation therapy
  3. CALCIUM [Concomitant]
     Active Substance: CALCIUM
     Dosage: 500 MILLIGRAM, BID
  4. PENTASA [Concomitant]
     Active Substance: MESALAMINE
     Dosage: 1 GRAM, BID
  5. APIXABAN [Concomitant]
     Active Substance: APIXABAN
     Dosage: 2.5 MILLIGRAM, BID
  6. RABEPRAZOLE [Concomitant]
     Active Substance: RABEPRAZOLE
     Dosage: 10 MILLIGRAM, BID
  7. LAMISIL [Concomitant]
     Active Substance: TERBINAFINE HYDROCHLORIDE
     Dosage: UNK UNK, BID
  8. VITAMIN D [Concomitant]
     Active Substance: VITAMIN D NOS
     Dosage: UNK UNK, QD
  9. LORAZEPAM [Concomitant]
     Active Substance: LORAZEPAM
     Dosage: 1 MILLIGRAM, BID
  10. SYNTHROID [Concomitant]
     Active Substance: LEVOTHYROXINE SODIUM
     Dosage: 0.05 MILLIGRAM, QD
  11. FERROUS SULFATE [Concomitant]
     Active Substance: FERROUS SULFATE
     Dosage: 300 MILLIGRAM, QD
  12. DILTIAZEM [Concomitant]
     Active Substance: DILTIAZEM
     Dosage: 120 MILLIGRAM, QD
  13. TRAVOPROST [Concomitant]
     Active Substance: TRAVOPROST
     Dosage: UNK UNK, QD
  14. TIMOLOL [Concomitant]
     Active Substance: TIMOLOL
     Dosage: UNK UNK, QD
  15. FESOTERODINE [Concomitant]
     Active Substance: FESOTERODINE
  16. ELMIRON [Concomitant]
     Active Substance: PENTOSAN POLYSULFATE SODIUM
  17. ELIQUIS [Concomitant]
     Active Substance: APIXABAN
  18. MURO 128 [Concomitant]
     Active Substance: SODIUM CHLORIDE
     Dosage: UNK UNK, QD

REACTIONS (1)
  - Death [Fatal]
